FAERS Safety Report 10280495 (Version 3)
Quarter: 2014Q3

REPORT INFORMATION
  Report Type: Spontaneous
  Country: US (occurrence: None)
  Receive Date: 20140702
  Receipt Date: 20140718
  Transmission Date: 20150326
  Serious: Yes (Other)
  Sender: FDA-Public Use
  Company Number: 2014-US-007588

PATIENT
  Age: 78 Year
  Sex: Female
  Weight: 55.8 kg

DRUGS (7)
  1. XYREM [Suspect]
     Active Substance: SODIUM OXYBATE
     Indication: NARCOLEPSY
     Route: 048
     Dates: start: 200210, end: 2013
  2. XYREM [Suspect]
     Active Substance: SODIUM OXYBATE
     Indication: CATAPLEXY
     Route: 048
     Dates: start: 200210, end: 2013
  3. PROVIGIL [Suspect]
     Active Substance: MODAFINIL
     Indication: PRODUCT USED FOR UNKNOWN INDICATION
  4. VITAMINS NOS (VITAMINS NOS) [Concomitant]
     Active Substance: VITAMINS
  5. METHYLPHENIDATE [Concomitant]
     Active Substance: METHYLPHENIDATE
  6. CHLORTHALIDONE (CHLORTALIDONE) [Concomitant]
     Active Substance: CHLORTHALIDONE
  7. MULTIVITAMINS [Suspect]
     Active Substance: VITAMINS

REACTIONS (9)
  - Loss of consciousness [None]
  - Condition aggravated [None]
  - Cardiac pacemaker insertion [None]
  - Local swelling [None]
  - Heart rate irregular [None]
  - Transient ischaemic attack [None]
  - Dizziness [None]
  - Thrombosis [None]
  - Syncope [None]

NARRATIVE: CASE EVENT DATE: 20130101
